FAERS Safety Report 4612622-3 (Version None)
Quarter: 2005Q1

REPORT INFORMATION
  Report Type: 
  Country: None (occurrence: None)
  Receive Date: 20050316
  Receipt Date: 20050316
  Transmission Date: 20050727
  Serious: Yes (Other)
  Sender: FDA-Public Use
  Company Number: None

PATIENT
  Age: 48 Year
  Sex: Female
  Weight: 54 kg

DRUGS (13)
  1. LOVENOX [Suspect]
     Indication: DEEP VEIN THROMBOSIS
     Dosage: 80MG QD SUBCUTANEOUS
     Route: 058
     Dates: start: 20050204, end: 20050210
  2. WARFARIN [Concomitant]
  3. TOPAMAX [Concomitant]
  4. PROGRAF [Concomitant]
  5. PREDNISONE [Concomitant]
  6. VIT B6 [Concomitant]
  7. VIT B12 [Concomitant]
  8. CALCIUM GLUCONATE [Concomitant]
  9. KEPPRA [Concomitant]
  10. FOLIC ACID [Concomitant]
  11. FERROUS SULFATE TAB [Concomitant]
  12. M.V.I. [Concomitant]
  13. PROTONIX [Concomitant]

REACTIONS (3)
  - ALANINE AMINOTRANSFERASE INCREASED [None]
  - ASPARTATE AMINOTRANSFERASE INCREASED [None]
  - DRUG LEVEL BELOW THERAPEUTIC [None]
